FAERS Safety Report 13981331 (Version 1)
Quarter: 2017Q3

REPORT INFORMATION
  Report Type: Spontaneous
  Country: US (occurrence: US)
  Receive Date: 20170916
  Receipt Date: 20170916
  Transmission Date: 20171128
  Serious: Yes (Disabling)
  Sender: FDA-Public Use
  Company Number: None

PATIENT
  Age: 30 Year
  Sex: Male
  Weight: 74.25 kg

DRUGS (3)
  1. OMEPRAZOLE. [Suspect]
     Active Substance: OMEPRAZOLE
     Indication: PEPTIC ULCER
     Dosage: ?          QUANTITY:1 CAPSULE(S);?
     Route: 048
  2. FISH OIL GARDEN OF LIFE VITAMIN CODE MEN [Concomitant]
  3. SUCRALFATE. [Concomitant]
     Active Substance: SUCRALFATE

REACTIONS (4)
  - Throat tightness [None]
  - Lymphadenopathy [None]
  - Lymph node pain [None]
  - Headache [None]

NARRATIVE: CASE EVENT DATE: 20170901
